FAERS Safety Report 6335913-7 (Version None)
Quarter: 2009Q3

REPORT INFORMATION
  Report Type: 
  Country: None (occurrence: None)
  Receive Date: 20090828
  Receipt Date: 20090828
  Transmission Date: 20100115
  Serious: Yes (Life-Threatening, Disabling, Other)
  Sender: FDA-Public Use
  Company Number: None

PATIENT
  Age: 29 Year
  Sex: Female
  Weight: 58.9676 kg

DRUGS (1)
  1. MIRENA [Suspect]
     Indication: CONTRACEPTION
     Dosage: IUD VAG
     Route: 067
     Dates: start: 20080821, end: 20090820

REACTIONS (9)
  - COMPLICATION OF DEVICE INSERTION [None]
  - COMPLICATION OF DEVICE REMOVAL [None]
  - IATROGENIC INJURY [None]
  - IUD MIGRATION [None]
  - OVARIAN CYST [None]
  - PROCEDURAL PAIN [None]
  - UTERINE CERVICAL LACERATION [None]
  - UTERINE DISORDER [None]
  - UTERINE RUPTURE [None]
